FAERS Safety Report 21682102 (Version 1)
Quarter: 2022Q4

REPORT INFORMATION
  Report Type: Spontaneous
  Country: US (occurrence: US)
  Receive Date: 20221205
  Receipt Date: 20221205
  Transmission Date: 20230113
  Serious: No
  Sender: FDA-Public Use
  Company Number: US-PFIZER INC-202201344364

PATIENT
  Age: 37 Year
  Sex: Female

DRUGS (2)
  1. LORBRENA [Suspect]
     Active Substance: LORLATINIB
     Indication: Inflammatory myofibroblastic tumour
     Dosage: 75 MG
     Dates: start: 2020
  2. LORBRENA [Suspect]
     Active Substance: LORLATINIB
     Indication: Mutagenic effect
     Dosage: 50 MG
     Dates: start: 2020

REACTIONS (3)
  - Cognitive disorder [Unknown]
  - Fatigue [Unknown]
  - Off label use [Unknown]
